FAERS Safety Report 6937122-7 (Version None)
Quarter: 2010Q3

REPORT INFORMATION
  Report Type: 
  Country: None (occurrence: None)
  Receive Date: 20100823
  Receipt Date: 20100716
  Transmission Date: 20110219
  Serious: No
  Sender: FDA-Public Use
  Company Number: US-MYLANLABS-2010S1012895

PATIENT
  Age: 33 Year
  Sex: Female
  Weight: 53.52 kg

DRUGS (4)
  1. SUMATRIPTAN SUCCINATE [Suspect]
     Indication: MIGRAINE
     Route: 048
     Dates: start: 20100615, end: 20100615
  2. TOPAMAX [Concomitant]
     Indication: MIGRAINE
     Route: 048
  3. YAZ /01502501/ [Concomitant]
     Indication: CONTRACEPTION
  4. MULTI-VITAMIN [Concomitant]

REACTIONS (3)
  - MICTURITION URGENCY [None]
  - PRURITUS [None]
  - PSORIASIS [None]
